FAERS Safety Report 11246728 (Version 4)
Quarter: 2017Q4

REPORT INFORMATION
  Report Type: Spontaneous
  Country: JP (occurrence: JP)
  Receive Date: 20150708
  Receipt Date: 20171115
  Transmission Date: 20180320
  Serious: Yes (Other)
  Sender: FDA-Public Use
  Company Number: PHJP2015JP011314

PATIENT
  Age: 59 Year
  Sex: Male
  Weight: 55 kg

DRUGS (5)
  1. ZOMETA [Suspect]
     Active Substance: ZOLEDRONIC ACID
     Indication: METASTASES TO BONE
     Dosage: 4 MG, UNK
     Route: 041
     Dates: start: 20120622, end: 20121207
  2. TAKEPRON [Concomitant]
     Active Substance: LANSOPRAZOLE
     Indication: PRODUCT USED FOR UNKNOWN INDICATION
     Dosage: UNK
     Route: 065
  3. GASCON [Concomitant]
     Active Substance: DIMETHICONE
     Indication: PRODUCT USED FOR UNKNOWN INDICATION
     Dosage: UNK
     Route: 065
  4. PROMAC                                  /JPN/ [Concomitant]
     Indication: PRODUCT USED FOR UNKNOWN INDICATION
     Dosage: UNK
     Route: 065
  5. TS-1 [Concomitant]
     Active Substance: GIMERACIL\OTERACIL\TEGAFUR
     Indication: LUNG ADENOCARCINOMA
     Dosage: 30 MG, BID
     Route: 048

REACTIONS (10)
  - Erythema [Unknown]
  - Osteonecrosis of jaw [Recovering/Resolving]
  - Feeding disorder [Unknown]
  - Gingival swelling [Unknown]
  - Gingivitis [Unknown]
  - Toothache [Recovered/Resolved]
  - Pain in jaw [Unknown]
  - Primary sequestrum [Recovered/Resolved]
  - Tenderness [Unknown]
  - Osteomyelitis [Unknown]

NARRATIVE: CASE EVENT DATE: 20130104
